FAERS Safety Report 8230080-7 (Version None)
Quarter: 2012Q1

REPORT INFORMATION
  Report Type: 
  Country: None (occurrence: None)
  Receive Date: 20120323
  Receipt Date: 20120319
  Transmission Date: 20120608
  Serious: No
  Sender: FDA-Public Use
  Company Number: US-PFIZER INC-2012071714

PATIENT
  Sex: Male
  Weight: 68.027 kg

DRUGS (3)
  1. GABAPENTIN [Suspect]
     Indication: NEURALGIA
     Dosage: 300 MG, 1X/DAY
     Route: 048
     Dates: start: 20110701, end: 20110701
  2. GABAPENTIN [Suspect]
     Dosage: 150 MG, 1X/DAY
     Route: 048
     Dates: start: 20110701, end: 20110801
  3. VICODIN [Concomitant]
     Indication: NEURALGIA
     Dosage: UNK

REACTIONS (4)
  - PAIN [None]
  - DISTURBANCE IN ATTENTION [None]
  - SOMNOLENCE [None]
  - MALAISE [None]
